FAERS Safety Report 14115808 (Version 1)
Quarter: 2017Q4

REPORT INFORMATION
  Report Type: Spontaneous
  Country: US (occurrence: US)
  Receive Date: 20171023
  Receipt Date: 20171023
  Transmission Date: 20180321
  Serious: No
  Sender: FDA-Public Use
  Company Number: US-SA-2017SA126893

PATIENT
  Age: 85 Year
  Sex: Female

DRUGS (2)
  1. AVALIDE [Suspect]
     Active Substance: HYDROCHLOROTHIAZIDE\IRBESARTAN
     Indication: BLOOD PRESSURE MEASUREMENT
     Dosage: 150/12.5 MG
     Route: 048
  2. AVALIDE [Suspect]
     Active Substance: HYDROCHLOROTHIAZIDE\IRBESARTAN
     Indication: BLOOD PRESSURE MEASUREMENT
     Dosage: 150/12.5 MG
     Route: 048

REACTIONS (1)
  - Hypertension [Not Recovered/Not Resolved]
